FAERS Safety Report 16983250 (Version 1)
Quarter: 2019Q4

REPORT INFORMATION
  Report Type: Spontaneous
  Country: US (occurrence: US)
  Receive Date: 20191101
  Receipt Date: 20191101
  Transmission Date: 20200122
  Serious: No
  Sender: FDA-Public Use
  Company Number: US-FRESENIUS MEDICAL CARE RENAL THERAPIES GROUP-FMC-1910-001408

PATIENT
  Sex: Male
  Weight: 75 kg

DRUGS (12)
  1. DELFLEX WITH DEXTROSE 2.5% LOW MAGNESIUM LOW CALCIUM [Suspect]
     Active Substance: CALCIUM CHLORIDE\DEXTROSE\MAGNESIUM CHLORIDE\SODIUM CHLORIDE\SODIUM LACTATE
     Indication: END STAGE RENAL DISEASE
     Dosage: FILL VOLUME = 1000 ML, 13 EXCHANGES, NO LAST FILL, NO DAYTIME EXCHANGE
     Route: 033
  2. INSULIN ASPART [Concomitant]
     Active Substance: INSULIN ASPART
  3. CEFALEXIN [Concomitant]
     Active Substance: CEPHALEXIN
  4. PANTOPRAZOLE [Concomitant]
     Active Substance: PANTOPRAZOLE
  5. CALCIUM ACETATE. [Concomitant]
     Active Substance: CALCIUM ACETATE
  6. AMIODARONE [Concomitant]
     Active Substance: AMIODARONE
  7. SEVELAMER CARBONATE. [Concomitant]
     Active Substance: SEVELAMER CARBONATE
  8. DELFLEX WITH DEXTROSE 4.25% LOW MAGNESIUM LOW CALCIUM [Suspect]
     Active Substance: CALCIUM CHLORIDE\DEXTROSE\MAGNESIUM CHLORIDE\SODIUM CHLORIDE\SODIUM LACTATE
     Indication: END STAGE RENAL DISEASE
     Dosage: FILL VOLUME = 1000 ML, 13 EXCHANGES, NO LAST FILL, NO DAYTIME EXCHANGE
     Route: 033
  9. LEVOTHYROXINE. [Concomitant]
     Active Substance: LEVOTHYROXINE
  10. DELFLEX WITH DEXTROSE 1.5% LOW MAGNESIUM LOW CALCIUM [Suspect]
     Active Substance: CALCIUM CHLORIDE\DEXTROSE\MAGNESIUM CHLORIDE\SODIUM CHLORIDE\SODIUM LACTATE
     Indication: END STAGE RENAL DISEASE
     Dosage: FILL VOLUME = 1000 ML, 13 EXCHANGES, NO LAST FILL, NO DAYTIME EXCHANGE
     Route: 033
  11. LACTULOSE. [Concomitant]
     Active Substance: LACTULOSE
  12. INSULIN LISPRO PROTAMINE SUSPENSION [Concomitant]

REACTIONS (1)
  - Umbilical hernia [Recovering/Resolving]
